FAERS Safety Report 16202209 (Version 1)
Quarter: 2019Q2

REPORT INFORMATION
  Report Type: Spontaneous
  Country: CH (occurrence: CH)
  Receive Date: 20190416
  Receipt Date: 20190416
  Transmission Date: 20190711
  Serious: Yes (Hospitalization)
  Sender: FDA-Public Use
  Company Number: CH-TEVA-2019-CH-1038471

PATIENT
  Age: 13 Year
  Sex: Female

DRUGS (1)
  1. AMIODARONE [Suspect]
     Active Substance: AMIODARONE
     Indication: ARTERIOSPASM CORONARY
     Dosage: 150 MILLIGRAM DAILY;
     Route: 065

REACTIONS (2)
  - Hyperthyroidism [Recovering/Resolving]
  - Loss of consciousness [Recovering/Resolving]
